FAERS Safety Report 7822994-4 (Version None)
Quarter: 2011Q4

REPORT INFORMATION
  Report Type: 
  Country: None (occurrence: None)
  Receive Date: 20111018
  Receipt Date: 20110405
  Transmission Date: 20120403
  Serious: No
  Sender: FDA-Public Use
  Company Number: US-ASTRAZENECA-2011SE10579

PATIENT
  Sex: Male

DRUGS (2)
  1. SYMBICORT [Suspect]
     Indication: BRONCHOSPASM
     Route: 055
  2. PROAIR HFA [Suspect]

REACTIONS (3)
  - WRONG DRUG ADMINISTERED [None]
  - OFF LABEL USE [None]
  - NASOPHARYNGITIS [None]
